FAERS Safety Report 21530277 (Version 1)
Quarter: 2022Q4

REPORT INFORMATION
  Report Type: Spontaneous
  Country: None (occurrence: US)
  Receive Date: 20221031
  Receipt Date: 20221031
  Transmission Date: 20230113
  Serious: No
  Sender: FDA-Public Use
  Company Number: US-Mission Pharmacal Company-2134323

PATIENT
  Age: 57 Year
  Sex: Female

DRUGS (4)
  1. UROCIT-K [Suspect]
     Active Substance: POTASSIUM CITRATE
     Indication: Hydronephrosis
     Route: 048
  2. THIOLA [Concomitant]
     Active Substance: TIOPRONIN
     Route: 048
     Dates: start: 20141014
  3. PROZAC [Concomitant]
     Active Substance: FLUOXETINE HYDROCHLORIDE
  4. XANAX [Concomitant]
     Active Substance: ALPRAZOLAM

REACTIONS (1)
  - Arthralgia [Not Recovered/Not Resolved]
